FAERS Safety Report 5557322-0 (Version None)
Quarter: 2007Q4

REPORT INFORMATION
  Report Type: 
  Country: None (occurrence: None)
  Receive Date: 20071214
  Receipt Date: 20071211
  Transmission Date: 20080405
  Serious: Yes (Hospitalization)
  Sender: FDA-Public Use
  Company Number: US-BRISTOL-MYERS SQUIBB COMPANY-14010599

PATIENT
  Age: 46 Year
  Sex: Male
  Weight: 88 kg

DRUGS (3)
  1. CETUXIMAB [Suspect]
     Indication: SQUAMOUS CELL CARCINOMA
     Dosage: COURSE START DATE-24OCT07;
     Dates: start: 20071126, end: 20071126
  2. CISPLATIN [Suspect]
     Indication: SQUAMOUS CELL CARCINOMA
     Dosage: COURSE START DATE-24OCT07
     Route: 042
     Dates: start: 20071119, end: 20071119
  3. RADIATION THERAPY [Suspect]
     Indication: SQUAMOUS CELL CARCINOMA
     Dosage: 1 DOSAGEFORM = 4800CGY;FRACTIONS-35;ELAPSED DAYS-30
     Dates: start: 20071029, end: 20071127

REACTIONS (12)
  - CYTOMEGALOVIRUS INFECTION [None]
  - DYSPHAGIA [None]
  - EXFOLIATIVE RASH [None]
  - MUCOSAL INFLAMMATION [None]
  - NAUSEA [None]
  - NECROTISING OESOPHAGITIS [None]
  - ODYNOPHAGIA [None]
  - OESOPHAGITIS [None]
  - ORAL INTAKE REDUCED [None]
  - RASH ERYTHEMATOUS [None]
  - STOMATITIS [None]
  - VOMITING [None]
